FAERS Safety Report 13756260 (Version 1)
Quarter: 2017Q3

REPORT INFORMATION
  Report Type: Report from Study
  Country: US (occurrence: US)
  Receive Date: 20170714
  Receipt Date: 20170714
  Transmission Date: 20171127
  Serious: No
  Sender: FDA-Public Use
  Company Number: PHEH2017US021582

PATIENT
  Age: 42 Year
  Sex: Female
  Weight: 95.24 kg

DRUGS (1)
  1. GILENYA [Suspect]
     Active Substance: FINGOLIMOD HYDROCHLORIDE
     Indication: MULTIPLE SCLEROSIS
     Dosage: 0.5 MG, QD
     Route: 048
     Dates: start: 20160726

REACTIONS (5)
  - Memory impairment [Unknown]
  - Dizziness [Unknown]
  - Dyspnoea [Unknown]
  - Anxiety [Unknown]
  - Malaise [Unknown]

NARRATIVE: CASE EVENT DATE: 20170712
